FAERS Safety Report 7903809-2 (Version None)
Quarter: 2011Q4

REPORT INFORMATION
  Report Type: 
  Country: None (occurrence: None)
  Receive Date: 20111109
  Receipt Date: 20111104
  Transmission Date: 20120403
  Serious: Yes (Hospitalization)
  Sender: FDA-Public Use
  Company Number: ES-SANOFI-AVENTIS-2011SA072824

PATIENT
  Age: 62 Year
  Sex: Male

DRUGS (2)
  1. ENOXAPARIN SODIUM [Suspect]
     Route: 065
     Dates: start: 20110406, end: 20110409
  2. ASPIRIN [Suspect]
     Route: 065
     Dates: start: 20110406, end: 20110409

REACTIONS (2)
  - HAEMATURIA [None]
  - URINARY RETENTION [None]
